FAERS Safety Report 5755599-X (Version None)
Quarter: 2008Q2

REPORT INFORMATION
  Report Type: 
  Country: None (occurrence: None)
  Receive Date: 20080602
  Receipt Date: 20080530
  Transmission Date: 20081010
  Serious: Yes (Hospitalization, Other)
  Sender: FDA-Public Use
  Company Number: JP-BRISTOL-MYERS SQUIBB COMPANY-14211544

PATIENT
  Age: 72 Year
  Sex: Male
  Weight: 47 kg

DRUGS (6)
  1. CISPLATIN [Suspect]
     Indication: PLEURAL MESOTHELIOMA MALIGNANT
     Route: 042
     Dates: start: 20070717, end: 20070717
  2. ALIMTA [Suspect]
     Indication: PLEURAL MESOTHELIOMA MALIGNANT
     Route: 042
     Dates: start: 20070717, end: 20070717
  3. FOLIAMIN [Concomitant]
     Route: 048
     Dates: start: 20070705, end: 20070724
  4. KYTRIL [Concomitant]
     Dosage: 1 DOSAGE FORM = INJECTION
     Dates: start: 20070717, end: 20070717
  5. PRIMPERAN TAB [Concomitant]
     Dosage: 1 DOSAGE FORM = INJECTION
     Dates: start: 20070717, end: 20070718
  6. MECOBALAMIN [Concomitant]
     Dates: start: 20070706, end: 20070706

REACTIONS (2)
  - ENTEROCOLITIS [None]
  - SEPSIS [None]
